FAERS Safety Report 7478182-7 (Version None)
Quarter: 2011Q2

REPORT INFORMATION
  Report Type: 
  Country: None (occurrence: None)
  Receive Date: 20110513
  Receipt Date: 20110504
  Transmission Date: 20111010
  Serious: Yes (Other)
  Sender: FDA-Public Use
  Company Number: PHHY2011US36658

PATIENT
  Sex: Male

DRUGS (2)
  1. COPAXONE [Concomitant]
     Indication: MULTIPLE SCLEROSIS
     Dosage: 20 MG, QD
     Route: 058
     Dates: start: 20100205, end: 20110418
  2. GILENYA [Suspect]
     Indication: MULTIPLE SCLEROSIS
     Dosage: 0.5 MG, QD
     Route: 048
     Dates: start: 20110419, end: 20110420

REACTIONS (3)
  - CHEST PAIN [None]
  - SINUS BRADYCARDIA [None]
  - RESPIRATORY RATE DECREASED [None]
